FAERS Safety Report 12983708 (Version 1)
Quarter: 2016Q4

REPORT INFORMATION
  Report Type: Spontaneous
  Country: US (occurrence: US)
  Receive Date: 20161129
  Receipt Date: 20161129
  Transmission Date: 20170207
  Serious: No
  Sender: FDA-Public Use
  Company Number: US-MEDA-2016110037

PATIENT
  Sex: Male

DRUGS (3)
  1. MUSE [Suspect]
     Active Substance: ALPROSTADIL
     Route: 066
  2. VIAGRA [Concomitant]
     Active Substance: SILDENAFIL CITRATE
  3. CIALIS [Concomitant]
     Active Substance: TADALAFIL

REACTIONS (1)
  - Ejaculation disorder [Unknown]
